FAERS Safety Report 23486367 (Version 1)
Quarter: 2024Q1

REPORT INFORMATION
  Report Type: Spontaneous
  Country: US (occurrence: None)
  Receive Date: 20240206
  Receipt Date: 20240206
  Transmission Date: 20240409
  Serious: No
  Sender: FDA-Public Use
  Company Number: 2024A023450

PATIENT
  Sex: Female

DRUGS (1)
  1. FARXIGA [Suspect]
     Active Substance: DAPAGLIFLOZIN PROPANEDIOL
     Indication: Dyspnoea
     Route: 048

REACTIONS (5)
  - Dyspnoea [Unknown]
  - Fatigue [Unknown]
  - Loss of consciousness [Unknown]
  - Product dose omission issue [Unknown]
  - Off label use [Unknown]
